FAERS Safety Report 5300433-5 (Version None)
Quarter: 2007Q2

REPORT INFORMATION
  Report Type: 
  Country: None (occurrence: None)
  Receive Date: 20070418
  Receipt Date: 20070406
  Transmission Date: 20071010
  Serious: Yes (Hospitalization)
  Sender: FDA-Public Use
  Company Number: US-AMGEN-STX218647

PATIENT
  Sex: Female

DRUGS (2)
  1. ENBREL [Suspect]
     Indication: RHEUMATOID ARTHRITIS
     Route: 058
     Dates: start: 19990718
  2. METHOTREXATE [Concomitant]
     Route: 065
     Dates: start: 19940101

REACTIONS (2)
  - CORONARY ARTERY OCCLUSION [None]
  - ECHOCARDIOGRAM ABNORMAL [None]
